FAERS Safety Report 10690623 (Version 1)
Quarter: 2015Q1

REPORT INFORMATION
  Report Type: Spontaneous
  Country: US (occurrence: US)
  Receive Date: 20150105
  Receipt Date: 20150105
  Transmission Date: 20150720
  Serious: Yes (Death, Other)
  Sender: FDA-Public Use
  Company Number: PHHY2014US169752

PATIENT
  Age: 49 Year
  Sex: Female

DRUGS (1)
  1. METOPROLOL [Suspect]
     Active Substance: METOPROLOL
     Indication: PRODUCT USED FOR UNKNOWN INDICATION
     Route: 065

REACTIONS (12)
  - Hypotension [Unknown]
  - Acute respiratory distress syndrome [Unknown]
  - Respiratory depression [Unknown]
  - Metabolic acidosis [Unknown]
  - Bradypnoea [Unknown]
  - Gastrointestinal haemorrhage [Unknown]
  - Depressed level of consciousness [Unknown]
  - Pancreatitis [Unknown]
  - Acute lung injury [Unknown]
  - Coma [Unknown]
  - Coagulopathy [Unknown]
  - Death [Fatal]
